FAERS Safety Report 13288255 (Version 2)
Quarter: 2017Q1

REPORT INFORMATION
  Report Type: Spontaneous
  Country: US (occurrence: US)
  Receive Date: 20170302
  Receipt Date: 20170308
  Transmission Date: 20170428
  Serious: Yes (Other)
  Sender: FDA-Public Use
  Company Number: US-JEROME STEVENS PHARMACEUTICALS, INC.-1063762

PATIENT
  Sex: Female

DRUGS (6)
  1. NALTREXONE HYDROCHLORIDE. [Concomitant]
     Active Substance: NALTREXONE HYDROCHLORIDE
  2. L-CARNITINE [Concomitant]
     Active Substance: LEVOCARNITINE
  3. D-RIBOSE [Concomitant]
     Active Substance: DIETARY SUPPLEMENT
  4. PQQ SUPPLEMENTS [Concomitant]
  5. LEVOTHYROXINE SODIUM. [Suspect]
     Active Substance: LEVOTHYROXINE SODIUM
     Indication: AUTOIMMUNE THYROIDITIS
     Route: 048
  6. COQ10 [Concomitant]
     Active Substance: UBIDECARENONE

REACTIONS (3)
  - Bradycardia [Recovering/Resolving]
  - Dyspnoea [Recovering/Resolving]
  - Nausea [Recovering/Resolving]
